FAERS Safety Report 26094058 (Version 1)
Quarter: 2025Q4

REPORT INFORMATION
  Report Type: Spontaneous
  Country: US (occurrence: US)
  Receive Date: 20251126
  Receipt Date: 20251126
  Transmission Date: 20260117
  Serious: No
  Sender: INSUD PHARMA
  Company Number: US-INSUD PHARMA-2511US09699

PATIENT

DRUGS (7)
  1. MELEYA [Suspect]
     Active Substance: NORETHINDRONE
     Indication: Polycystic ovarian syndrome
     Dosage: UNK, ONCE A DAY
     Route: 048
     Dates: start: 20250612
  2. MELEYA [Suspect]
     Active Substance: NORETHINDRONE
     Dosage: UNK, ONCE A DAY
     Route: 048
     Dates: end: 20250512
  3. MELEYA [Suspect]
     Active Substance: NORETHINDRONE
     Dosage: UNK, ONCE A DAY
     Route: 048
     Dates: start: 2012, end: 2021
  4. NORTRIPTYLINE [Concomitant]
     Active Substance: NORTRIPTYLINE
     Dosage: 10 MILLIGRAM
  5. SPIRONOLACTONE [Concomitant]
     Active Substance: SPIRONOLACTONE
     Dosage: 100 MILLIGRAM
  6. TRETINOIN [Concomitant]
     Active Substance: TRETINOIN
     Dosage: 0.1 PERCENT
  7. TRIAMCINOLONE [Concomitant]
     Active Substance: TRIAMCINOLONE

REACTIONS (3)
  - Flat affect [Unknown]
  - Mood swings [Unknown]
  - Product use in unapproved indication [Unknown]
